FAERS Safety Report 25828623 (Version 1)
Quarter: 2025Q3

REPORT INFORMATION
  Report Type: Spontaneous
  Country: EU (occurrence: EU)
  Receive Date: 20250922
  Receipt Date: 20250922
  Transmission Date: 20251021
  Serious: Yes (Hospitalization, Other)
  Sender: JOHNSON AND JOHNSON
  Company Number: None

PATIENT
  Age: 71 Year
  Sex: Male
  Weight: 65 kg

DRUGS (1)
  1. ERLEADA [Suspect]
     Active Substance: APALUTAMIDE
     Indication: Prostate cancer metastatic
     Dosage: 240MG/TAG
     Route: 048
     Dates: start: 20250301

REACTIONS (2)
  - Organising pneumonia [Recovered/Resolved with Sequelae]
  - Dependence on oxygen therapy [Unknown]

NARRATIVE: CASE EVENT DATE: 20250815
